FAERS Safety Report 12682776 (Version 1)
Quarter: 2016Q3

REPORT INFORMATION
  Report Type: Spontaneous
  Country: US (occurrence: US)
  Receive Date: 20160825
  Receipt Date: 20160825
  Transmission Date: 20161109
  Serious: No
  Sender: FDA-Public Use
  Company Number: US-BIOGEN-2016BI00281731

PATIENT
  Sex: Female

DRUGS (1)
  1. PLEGRIDY [Suspect]
     Active Substance: PEGINTERFERON BETA-1A
     Indication: MULTIPLE SCLEROSIS
     Route: 065
     Dates: start: 20150201

REACTIONS (7)
  - Glossodynia [Unknown]
  - Mouth haemorrhage [Unknown]
  - Fatigue [Unknown]
  - Back pain [Unknown]
  - Oral disorder [Unknown]
  - Oral mucosal eruption [Unknown]
  - Arthralgia [Unknown]
